FAERS Safety Report 5405843-3 (Version None)
Quarter: 2007Q3

REPORT INFORMATION
  Report Type: 
  Country: None (occurrence: None)
  Receive Date: 20070802
  Receipt Date: 20070723
  Transmission Date: 20080115
  Serious: Yes (Hospitalization)
  Sender: FDA-Public Use
  Company Number: 2007BI014132

PATIENT
  Age: 24 Year
  Sex: Female

DRUGS (9)
  1. AVONEX [Suspect]
     Indication: MULTIPLE SCLEROSIS
     Dosage: 30 UG; QW; IM
     Route: 030
     Dates: start: 20051001
  2. WELLBUTRIN [Concomitant]
  3. INDERAL [Concomitant]
  4. REQUIP [Concomitant]
  5. MULTI-VITAMIN [Concomitant]
  6. IRON [Concomitant]
  7. GINGKO BILOBA [Concomitant]
  8. BENADRYL [Concomitant]
  9. AMANTADINE HCL [Concomitant]

REACTIONS (11)
  - CEREBELLAR SYNDROME [None]
  - COGNITIVE DISORDER [None]
  - DEPRESSION [None]
  - FALL [None]
  - HYPOACUSIS [None]
  - INFLUENZA [None]
  - MULTIPLE SCLEROSIS RELAPSE [None]
  - MUSCULAR WEAKNESS [None]
  - SENSORY LOSS [None]
  - TREMOR [None]
  - VISION BLURRED [None]
